FAERS Safety Report 16561057 (Version 4)
Quarter: 2019Q3

REPORT INFORMATION
  Report Type: Spontaneous
  Country: DE (occurrence: DE)
  Receive Date: 20190711
  Receipt Date: 20190812
  Transmission Date: 20191004
  Serious: Yes (Death, Hospitalization)
  Sender: FDA-Public Use
  Company Number: DE-MYLANLABS-2019M1063386

PATIENT
  Age: 93 Year
  Sex: Female
  Weight: 58 kg

DRUGS (20)
  1. ASPIRIN PROTECT [Concomitant]
     Active Substance: ASPIRIN
     Indication: CEREBROVASCULAR ACCIDENT
     Dosage: 1 DOSAGE FORM, QD 1 DF, QD (AFTERNOON)
     Route: 050
     Dates: start: 199707
  2. DOMPERIDONE RATIOPHARM [Interacting]
     Active Substance: DOMPERIDONE
     Dosage: 3 DOSAGE FORM, QD 1 DF, TID
     Route: 048
  3. TORASEMIDE [Concomitant]
     Active Substance: TORSEMIDE
     Indication: ESSENTIAL HYPERTENSION
     Dosage: 0.25 DOSAGE FORM, QD 0.25 DF, QD (MORNING)
     Route: 050
  4. DOMPERIDONE RATIOPHARM [Interacting]
     Active Substance: DOMPERIDONE
     Indication: VOMITING
     Dosage: UNK
  5. DIAZEPAM. [Suspect]
     Active Substance: DIAZEPAM
     Indication: PRODUCT USED FOR UNKNOWN INDICATION
     Dosage: UNK
     Route: 065
  6. HEPARIN [Concomitant]
     Active Substance: HEPARIN SODIUM
     Dosage: 1 DOSAGE FORM, QD 1 DF, QD (AFTERNOON)
     Route: 065
     Dates: start: 201605
  7. METOCLOPRAMIDE. [Concomitant]
     Active Substance: METOCLOPRAMIDE
     Indication: ENTERAL NUTRITION
     Dosage: 1-1; LONG-TERM MEDICATION
     Dates: start: 2016
  8. METOHEXAL                          /00376902/ [Concomitant]
     Active Substance: METOPROLOL SUCCINATE
     Indication: HYPERTENSION
     Dosage: 1/2 TABLET
  9. MOXIFLOXACIN HEXAL [Interacting]
     Active Substance: MOXIFLOXACIN HYDROCHLORIDE
     Dosage: 400 MILLIGRAM, QD
     Route: 048
     Dates: start: 20181215, end: 20181219
  10. TORASEMIDE [Concomitant]
     Active Substance: TORSEMIDE
     Indication: HYPERTENSION
  11. HEPARIN [Concomitant]
     Active Substance: HEPARIN SODIUM
     Indication: PRODUCT USED FOR UNKNOWN INDICATION
     Dosage: UNK
  12. ASPIRIN PROTECT [Concomitant]
     Active Substance: ASPIRIN
     Indication: CEREBROVASCULAR ACCIDENT PROPHYLAXIS
     Dosage: UNK
  13. METOCLOPRAMIDE. [Concomitant]
     Active Substance: METOCLOPRAMIDE
     Indication: GASTROINTESTINAL DISORDER
     Dosage: 1 DOSAGE FORM, QD 1 DF, QD (MORNING)
     Route: 050
     Dates: start: 201505
  14. MOXIFLOXACIN. [Suspect]
     Active Substance: MOXIFLOXACIN
     Indication: URINARY TRACT INFECTION
     Dosage: UNK (2 TABLETS MANUFACTURER UNK RECEIVED FROM PHYSICIAN AT A HOME VISIT , AFTERWARDS MOXOFLOXACIN H)
     Route: 065
     Dates: start: 20181215, end: 201812
  15. DOMPERIDON                         /00498201/ [Interacting]
     Active Substance: DOMPERIDONE
     Indication: NAUSEA
     Dosage: UNK
     Route: 048
     Dates: start: 2015, end: 2018
  16. HEPARIN [Concomitant]
     Active Substance: HEPARIN SODIUM
     Dosage: 50000IU AND 750 ML IN ALTERNATION; 0-1-0
     Route: 065
     Dates: start: 2016
  17. MOXIFLOXACIN HEXAL [Interacting]
     Active Substance: MOXIFLOXACIN HYDROCHLORIDE
     Indication: URINARY TRACT INFECTION
     Dosage: 1600 MILLIGRAM, QD (1600 MILLIGRAM DAILY)
     Route: 048
     Dates: start: 20181215, end: 20181217
  18. DOMPERIDONE RATIOPHARM [Interacting]
     Active Substance: DOMPERIDONE
     Indication: NAUSEA
     Dosage: UNK
     Route: 048
     Dates: start: 2015, end: 2018
  19. ASPIRIN PROTECT [Concomitant]
     Active Substance: ASPIRIN
     Indication: ISCHAEMIC HEART DISEASE PROPHYLAXIS
  20. OMEP                               /00661201/ [Concomitant]
     Active Substance: OMEPRAZOLE
     Dosage: 20 MILLIGRAM

REACTIONS (18)
  - Crying [Recovering/Resolving]
  - Anxiety disorder [Recovering/Resolving]
  - Panic attack [Recovering/Resolving]
  - Hallucination [Recovering/Resolving]
  - Psychomotor hyperactivity [Recovering/Resolving]
  - Abnormal behaviour [Recovering/Resolving]
  - Logorrhoea [Recovering/Resolving]
  - Confusional state [Unknown]
  - Cystitis [Recovering/Resolving]
  - Drug interaction [Unknown]
  - Oral discharge [Unknown]
  - Agitation [Recovering/Resolving]
  - Scatolia [Recovering/Resolving]
  - Panic reaction [Unknown]
  - Heart rate increased [Recovering/Resolving]
  - Pneumonia aspiration [Fatal]
  - Mental disorder [Unknown]
  - Pyrexia [Unknown]

NARRATIVE: CASE EVENT DATE: 201812
